FAERS Safety Report 9915082 (Version 1)
Quarter: 2014Q1

REPORT INFORMATION
  Report Type: Report from Study
  Country: PL (occurrence: PL)
  Receive Date: 20140220
  Receipt Date: 20140220
  Transmission Date: 20141002
  Serious: Yes (Life-Threatening, Hospitalization)
  Sender: FDA-Public Use
  Company Number: PL-ASTRAZENECA-2014SE10749

PATIENT
  Age: 61 Year
  Sex: Male

DRUGS (6)
  1. STUDY PROCEDURE [Suspect]
     Indication: ACUTE CORONARY SYNDROME
     Route: 065
  2. TICAGRELOR [Suspect]
     Indication: ACUTE CORONARY SYNDROME
     Route: 048
     Dates: start: 20131029
  3. PRESTARIUM [Concomitant]
  4. TORVALIPIN [Concomitant]
  5. CONCOR [Concomitant]
  6. ASPIRIN (NON-AZ PRODUCT) [Suspect]

REACTIONS (2)
  - Drug ineffective [Unknown]
  - Myocardial infarction [Not Recovered/Not Resolved]
